FAERS Safety Report 19408176 (Version 1)
Quarter: 2021Q2

REPORT INFORMATION
  Report Type: Spontaneous
  Country: AR (occurrence: AR)
  Receive Date: 20210611
  Receipt Date: 20210611
  Transmission Date: 20210717
  Serious: Yes (Disabling)
  Sender: FDA-Public Use
  Company Number: AR-PFIZER INC-2021634447

PATIENT
  Age: 67 Year
  Sex: Female

DRUGS (1)
  1. IBRANCE [Suspect]
     Active Substance: PALBOCICLIB
     Indication: BREAST CANCER METASTATIC
     Dosage: 125 MG, DAILY, SCHEME 3X1
     Dates: start: 20161201

REACTIONS (5)
  - Decreased immune responsiveness [Unknown]
  - Loss of personal independence in daily activities [Unknown]
  - Crying [Unknown]
  - Fear-related avoidance of activities [Unknown]
  - Motor dysfunction [Unknown]

NARRATIVE: CASE EVENT DATE: 202105
